FAERS Safety Report 4430021-4 (Version None)
Quarter: 2004Q3

REPORT INFORMATION
  Report Type: 
  Country: None (occurrence: None)
  Receive Date: 20040820
  Receipt Date: 20040817
  Transmission Date: 20050211
  Serious: Yes (Hospitalization)
  Sender: FDA-Public Use
  Company Number: FR-MERCK-0408FRA00030

PATIENT
  Age: 83 Year
  Sex: Female

DRUGS (9)
  1. AMIODARONE HYDROCHLORIDE [Concomitant]
     Route: 048
  2. DIOSMIN [Concomitant]
     Route: 048
  3. FUROSEMIDE [Concomitant]
     Route: 048
  4. GINKGO BILOBA EXTRACT [Concomitant]
     Route: 048
  5. HYDROCHLOROTHIAZIDE [Concomitant]
     Route: 048
  6. NITROGLYCERIN [Concomitant]
     Indication: CORONARY ARTERY INSUFFICIENCY
     Route: 061
  7. NITROGLYCERIN [Concomitant]
     Route: 060
  8. NOROXIN [Suspect]
     Indication: URINARY TRACT INFECTION
     Route: 048
     Dates: start: 20040716, end: 20040721
  9. VALSARTAN [Concomitant]
     Route: 048

REACTIONS (1)
  - PURPURA [None]
